FAERS Safety Report 20930931 (Version 1)
Quarter: 2022Q2

REPORT INFORMATION
  Report Type: Spontaneous
  Country: FR (occurrence: FR)
  Receive Date: 20220608
  Receipt Date: 20220608
  Transmission Date: 20220721
  Serious: Yes (Hospitalization)
  Sender: FDA-Public Use
  Company Number: None

PATIENT
  Age: 71 Year
  Sex: Female
  Weight: 83 kg

DRUGS (8)
  1. PROPRANOLOL [Suspect]
     Active Substance: PROPRANOLOL HYDROCHLORIDE
     Indication: Product used for unknown indication
     Dosage: THERAPY START DATE :  ASKED BUT UNKNOWN, UNIT DOSE : 160 MG, FREQUENCY TIME : 1 DAYS
     Route: 048
  2. ACETAMINOPHEN [Suspect]
     Active Substance: ACETAMINOPHEN
     Indication: Pain
     Dosage: THERAPY START DATE :  ASKED BUT UNKNOWN, UNIT DOSE : 3 GRAM, FREQUENCY TIME : 1 AS REQUIRED
     Route: 048
  3. POLYETHYLENE GLYCOLS [Suspect]
     Active Substance: POLYETHYLENE GLYCOLS
     Indication: Constipation
     Dosage: THERAPY START DATE :  ASKED BUT UNKNOWN, UNIT DOSE : 1 DOSAGE  FORMS,  FREQUENCY TIME : 1 DAYS
     Route: 048
  4. LEVOTHYROXINE SODIUM [Suspect]
     Active Substance: LEVOTHYROXINE SODIUM
     Indication: Hypothyroidism
     Dosage: THERAPY START DATE :  ASKED BUT UNKNOWN, UNIT DOSE : 3375 MICROGRAM, FREQUENCY TIME : 1 MONTHS
     Route: 048
  5. PREDNISONE [Suspect]
     Active Substance: PREDNISONE
     Indication: Dermatomyositis
     Dosage: THERAPY START DATE :  ASKED BUT UNKNOWN,  UNIT DOSE : 20 MG, FREQUENCY TIME : 1 DAYS
     Route: 048
  6. CALCIUM CARBONATE [Suspect]
     Active Substance: CALCIUM CARBONATE
     Indication: Mineral supplementation
     Dosage: 500, THERAPY START DATE :  ASKED BUT UNKNOWN
     Route: 048
  7. XELJANZ [Suspect]
     Active Substance: TOFACITINIB CITRATE
     Indication: Dermatomyositis
     Dosage: THERAPY START DATE :  ASKED BUT UNKNOWN, UNIT DOSE AND UNIT STRENGTH : 10 MG, FREQUENCY TIME : 1 DAY
     Route: 048
  8. CROMOLYN SODIUM [Suspect]
     Active Substance: CROMOLYN SODIUM
     Indication: Sjogren^s syndrome
     Dosage: UNIDOSES, STRENGTH : 2%, THERAPY START DATE :  ASKED BUT UNKNOWN, FREQUENCY TIME : 1 DAYS, UNIT DOSE
     Route: 047

REACTIONS (1)
  - Pulmonary embolism [Recovered/Resolved]

NARRATIVE: CASE EVENT DATE: 20220315
